FAERS Safety Report 7814453-X (Version None)
Quarter: 2011Q4

REPORT INFORMATION
  Report Type: 
  Country: None (occurrence: None)
  Receive Date: 20111014
  Receipt Date: 20110930
  Transmission Date: 20120403
  Serious: Yes (Other)
  Sender: FDA-Public Use
  Company Number: US-ELI_LILLY_AND_COMPANY-US201110000205

PATIENT
  Age: 74 Year
  Sex: Female

DRUGS (5)
  1. PROZAC [Suspect]
     Dosage: 20 MG, QOD
  2. PROZAC [Suspect]
     Dosage: 20 MG, QD
  3. PROZAC [Suspect]
     Indication: DEPRESSION
     Dosage: 10 MG, QD
  4. PROZAC [Suspect]
     Dosage: 20 MG, QD
  5. CELEBREX [Concomitant]

REACTIONS (8)
  - FIBROMYALGIA [None]
  - INAPPROPRIATE SCHEDULE OF DRUG ADMINISTRATION [None]
  - MALAISE [None]
  - WEIGHT INCREASED [None]
  - VERTIGO [None]
  - DIZZINESS [None]
  - CRYING [None]
  - DRUG INEFFECTIVE [None]
